FAERS Safety Report 7121228-6 (Version None)
Quarter: 2010Q4

REPORT INFORMATION
  Report Type: 
  Country: None (occurrence: None)
  Receive Date: 20101124
  Receipt Date: 20101110
  Transmission Date: 20110411
  Serious: Yes (Other)
  Sender: FDA-Public Use
  Company Number: US-SANOFI-AVENTIS-2010SA069205

PATIENT
  Age: 58 Year
  Sex: Female

DRUGS (4)
  1. AMBIEN [Suspect]
     Indication: PAIN
     Route: 048
     Dates: start: 20050101
  2. AMBIEN [Suspect]
     Route: 048
  3. ALBUTEROL [Concomitant]
  4. CHLOR-TRIMETON [Concomitant]

REACTIONS (13)
  - ANKLE FRACTURE [None]
  - BLOOD PRESSURE DECREASED [None]
  - CATARACT [None]
  - FALL [None]
  - FOOT FRACTURE [None]
  - INTENTIONAL OVERDOSE [None]
  - OFF LABEL USE [None]
  - OSTEOPOROSIS [None]
  - PAIN [None]
  - PHARYNGITIS [None]
  - SPINAL FRACTURE [None]
  - THERAPEUTIC RESPONSE UNEXPECTED [None]
  - VOCAL CORD DISORDER [None]
